FAERS Safety Report 12116717 (Version 14)
Quarter: 2023Q4

REPORT INFORMATION
  Report Type: Report from Study
  Country: SE (occurrence: SE)
  Receive Date: 20160225
  Receipt Date: 20231208
  Transmission Date: 20240110
  Serious: Yes (Death, Hospitalization, Other)
  Sender: FDA-Public Use
  Company Number: SE-SA-2016SA037008

PATIENT
  Age: 39 Year
  Sex: Female

DRUGS (5)
  1. ALEMTUZUMAB [Suspect]
     Active Substance: ALEMTUZUMAB
     Indication: Relapsing-remitting multiple sclerosis
     Dosage: 12 MG,QD
     Route: 041
     Dates: start: 20160208, end: 20160212
  2. SOLU-MEDROL [Concomitant]
     Active Substance: METHYLPREDNISOLONE SODIUM SUCCINATE
     Dosage: UNK, UNK
  3. ACYCLOVIR [Concomitant]
     Active Substance: ACYCLOVIR
     Indication: Prophylaxis
     Dosage: UNK
     Dates: start: 20160204
  4. ACETAMINOPHEN [Concomitant]
     Active Substance: ACETAMINOPHEN
     Dosage: UNK
  5. LORATADINE [Concomitant]
     Active Substance: LORATADINE
     Dosage: UNK

REACTIONS (21)
  - Multiple organ dysfunction syndrome [Fatal]
  - Hepatic failure [Fatal]
  - Cytomegalovirus hepatitis [Fatal]
  - Ascites [Fatal]
  - Hepatitis fulminant [Fatal]
  - Hepatitis viral [Fatal]
  - Infection reactivation [Fatal]
  - Colitis [Fatal]
  - Herpes virus infection [Fatal]
  - Cytomegalovirus infection [Fatal]
  - Epstein-Barr virus infection [Fatal]
  - Adenovirus infection [Fatal]
  - Hepatic function abnormal [Fatal]
  - Diarrhoea haemorrhagic [Fatal]
  - Circulatory collapse [Fatal]
  - Coagulopathy [Fatal]
  - Vomiting [Fatal]
  - Abdominal pain [Fatal]
  - Malaise [Fatal]
  - Dehydration [Fatal]
  - Infusion related reaction [Unknown]

NARRATIVE: CASE EVENT DATE: 20160201
